FAERS Safety Report 5054417-5 (Version None)
Quarter: 2006Q3

REPORT INFORMATION
  Report Type: 
  Country: None (occurrence: None)
  Receive Date: 20060713
  Receipt Date: 20060628
  Transmission Date: 20061208
  Serious: Yes (Other)
  Sender: FDA-Public Use
  Company Number: ABRIP-06-0324

PATIENT
  Sex: Female

DRUGS (1)
  1. ABRAXANE FOR INJECTABLE SUSPENSION (PACLITAXEL PROTEIN-BOUND) (PACLITA [Suspect]
     Dosage: INTRAVENOUS DRIP
     Route: 041

REACTIONS (1)
  - ILEUS PARALYTIC [None]
